FAERS Safety Report 6327854-6 (Version None)
Quarter: 2009Q3

REPORT INFORMATION
  Report Type: 
  Country: None (occurrence: None)
  Receive Date: 20090824
  Receipt Date: 20090721
  Transmission Date: 20100115
  Serious: Yes (Hospitalization)
  Sender: FDA-Public Use
  Company Number: 2009AL005350

PATIENT
  Age: 66 Year
  Sex: Female

DRUGS (6)
  1. METFORMIN HCL [Suspect]
     Indication: DIABETES MELLITUS
     Dosage: PO
     Route: 048
     Dates: end: 20090601
  2. ALBYL-E [Concomitant]
  3. LIPITOR [Concomitant]
  4. NEURONTIN [Concomitant]
  5. AMLODIPINE [Concomitant]
  6. COZAAR [Concomitant]

REACTIONS (8)
  - CHEST PAIN [None]
  - DEHYDRATION [None]
  - GASTROENTERITIS [None]
  - HAEMODIALYSIS [None]
  - HYPERKALAEMIA [None]
  - HYPONATRAEMIA [None]
  - KETOACIDOSIS [None]
  - RENAL FAILURE ACUTE [None]
